FAERS Safety Report 13251959 (Version 1)
Quarter: 2017Q1

REPORT INFORMATION
  Report Type: Spontaneous
  Country: BR (occurrence: BR)
  Receive Date: 20170220
  Receipt Date: 20170220
  Transmission Date: 20170428
  Serious: Yes (Other)
  Sender: FDA-Public Use
  Company Number: BR-VALIDUS PHARMACEUTICALS LLC-BR-2017VAL000230

PATIENT
  Age: 55 Year
  Sex: Male

DRUGS (12)
  1. CLONIDINE. [Suspect]
     Active Substance: CLONIDINE
     Indication: NEPHROTIC SYNDROME
     Dosage: 0.1 MILLIGRAM(S);TWICE A DAY
     Route: 065
  2. ALLOPURINOL. [Concomitant]
     Active Substance: ALLOPURINOL
     Indication: PRODUCT USED FOR UNKNOWN INDICATION
     Dosage: UNK
  3. CAPTOPRIL. [Suspect]
     Active Substance: CAPTOPRIL
     Indication: NEPHROTIC SYNDROME
     Dosage: 50 MILLIGRAM(S);3 TIMES A DAY
     Route: 065
  4. SULFAMETHOXAZOLE W/TRIMETHOPRIM [Concomitant]
     Active Substance: SULFAMETHOXAZOLE\TRIMETHOPRIM
     Indication: PRODUCT USED FOR UNKNOWN INDICATION
     Dosage: UNK
  5. PREDNISONE. [Concomitant]
     Active Substance: PREDNISONE
     Indication: PRODUCT USED FOR UNKNOWN INDICATION
     Dosage: UNK
  6. DEXAMETHASONE. [Suspect]
     Active Substance: DEXAMETHASONE
     Indication: LIGHT CHAIN DISEASE
     Dosage: UNK
     Route: 065
  7. OMEPRAZOLE. [Concomitant]
     Active Substance: OMEPRAZOLE
     Indication: PRODUCT USED FOR UNKNOWN INDICATION
     Dosage: UNK
  8. ACICLOVIR [Concomitant]
     Active Substance: ACYCLOVIR
     Indication: PRODUCT USED FOR UNKNOWN INDICATION
     Dosage: UNK
  9. FUROSEMIDE. [Suspect]
     Active Substance: FUROSEMIDE
     Indication: NEPHROTIC SYNDROME
     Dosage: 40 MILLIGRAM(S); 3 TIMES A DAY
     Route: 065
  10. BORTEZOMIB [Suspect]
     Active Substance: BORTEZOMIB
     Indication: LIGHT CHAIN DISEASE
     Dosage: UNK
     Route: 065
  11. SPIRONOLACTONE. [Suspect]
     Active Substance: SPIRONOLACTONE
     Indication: NEPHROTIC SYNDROME
     Dosage: 25 MILLIGRAM(S); 3 TIMES A DAY
     Route: 065
  12. LOSARTAN. [Suspect]
     Active Substance: LOSARTAN
     Indication: NEPHROTIC SYNDROME
     Dosage: 50 MILLIGRAM(S);TWICE A DAY
     Route: 065

REACTIONS (6)
  - Hypotension [Recovered/Resolved]
  - Off label use [Unknown]
  - Dyspnoea exertional [Unknown]
  - Asthenia [Unknown]
  - Polyneuropathy [Recovering/Resolving]
  - Paraesthesia [Unknown]
